FAERS Safety Report 25040527 (Version 2)
Quarter: 2025Q1

REPORT INFORMATION
  Report Type: Report from Study
  Country: ZA (occurrence: ZA)
  Receive Date: 20250305
  Receipt Date: 20250320
  Transmission Date: 20250409
  Serious: Yes (Death, Hospitalization)
  Sender: REGENERON
  Company Number: ZA-BAYER-2025A027670

PATIENT
  Sex: Female

DRUGS (3)
  1. EYLEA [Suspect]
     Active Substance: AFLIBERCEPT
     Indication: Product used for unknown indication
     Dates: start: 20220815, end: 20220815
  2. EYLEA [Suspect]
     Active Substance: AFLIBERCEPT
     Dates: start: 20230619, end: 20230619
  3. EYLEA [Suspect]
     Active Substance: AFLIBERCEPT
     Dates: start: 20240917, end: 20240917

REACTIONS (2)
  - Death [Fatal]
  - Malaise [Not Recovered/Not Resolved]
